FAERS Safety Report 9935576 (Version 1)
Quarter: 2014Q1

REPORT INFORMATION
  Report Type: Spontaneous
  Country: US (occurrence: US)
  Receive Date: 20140228
  Receipt Date: 20140228
  Transmission Date: 20141002
  Serious: No
  Sender: FDA-Public Use
  Company Number: US-BAXTER-2014BAX009708

PATIENT
  Sex: Male

DRUGS (2)
  1. HEMOFIL M [Suspect]
     Indication: PRODUCT USED FOR UNKNOWN INDICATION
     Route: 065
  2. HEMOFIL M [Suspect]
     Route: 065
     Dates: start: 2011

REACTIONS (1)
  - Rash [Unknown]
